FAERS Safety Report 11513035 (Version 1)
Quarter: 2015Q3

REPORT INFORMATION
  Report Type: Spontaneous
  Country: US (occurrence: US)
  Receive Date: 20150903
  Receipt Date: 20150903
  Transmission Date: 20151125
  Serious: Yes (Other)
  Sender: FDA-Public Use
  Company Number: US-ELI_LILLY_AND_COMPANY-US201201000102

PATIENT
  Age: 60 Year
  Sex: Female

DRUGS (18)
  1. METHYLSULFONYLMETHANE [Concomitant]
     Active Substance: DIMETHYL SULFONE
  2. VITAMIN C [Concomitant]
     Active Substance: ASCORBIC ACID
  3. METAMUCIL [Concomitant]
     Active Substance: PLANTAGO SEED
  4. LISINOPRIL. [Concomitant]
     Active Substance: LISINOPRIL
  5. MAGNESIUM [Concomitant]
     Active Substance: MAGNESIUM
  6. CYMBALTA [Suspect]
     Active Substance: DULOXETINE HYDROCHLORIDE
     Indication: DEPRESSION
     Dosage: 30 MG, EACH EVENING
     Dates: start: 20111130, end: 20111229
  7. CALCIUM CITRATE WITH VITAMIN D [Concomitant]
     Active Substance: CALCIUM CITRATE\VITAMIN D
  8. CYMBALTA [Suspect]
     Active Substance: DULOXETINE HYDROCHLORIDE
     Dosage: 30 MG, EACH EVENING
     Dates: start: 20120908
  9. BETA CAROTENE [Concomitant]
  10. GLUCOSAMINE + CHONDROITIN [Concomitant]
  11. COENZYME Q10 [Concomitant]
     Active Substance: UBIDECARENONE
  12. VITAMIN E                            /001105/ [Concomitant]
  13. CLONAZEPAM. [Concomitant]
     Active Substance: CLONAZEPAM
     Indication: ANXIETY
     Dosage: UNK, QID
  14. ECHINACEA                          /01323501/ [Concomitant]
  15. LEVOTHYROXINE. [Concomitant]
     Active Substance: LEVOTHYROXINE
  16. OMEGA 3 FISH OIL [Concomitant]
     Active Substance: FISH OIL\OMEGA-3 FATTY ACIDS
  17. ZINC [Concomitant]
     Active Substance: ZINC\ZINC CHLORIDE
  18. CLONAZEPAM. [Concomitant]
     Active Substance: CLONAZEPAM
     Dosage: UNK, QID

REACTIONS (18)
  - Nocturia [Not Recovered/Not Resolved]
  - Abnormal dreams [Unknown]
  - Thinking abnormal [Recovering/Resolving]
  - Flatulence [Unknown]
  - Hyperhidrosis [Unknown]
  - Anxiety [Unknown]
  - Lymphadenopathy [Unknown]
  - Chest discomfort [Unknown]
  - Arthritis [Unknown]
  - Seizure [Unknown]
  - Insomnia [Not Recovered/Not Resolved]
  - Tremor [Not Recovered/Not Resolved]
  - Constipation [Not Recovered/Not Resolved]
  - Back pain [Not Recovered/Not Resolved]
  - Dizziness [Unknown]
  - Pruritus [Not Recovered/Not Resolved]
  - Sinus congestion [Unknown]
  - Middle insomnia [Unknown]

NARRATIVE: CASE EVENT DATE: 201112
